FAERS Safety Report 18607370 (Version 3)
Quarter: 2023Q1

REPORT INFORMATION
  Report Type: Spontaneous
  Country: US (occurrence: US)
  Receive Date: 20201211
  Receipt Date: 20230124
  Transmission Date: 20230417
  Serious: No
  Sender: FDA-Public Use
  Company Number: US-PFIZER INC-2020487419

PATIENT
  Age: 64 Year
  Sex: Female

DRUGS (1)
  1. IBRANCE [Suspect]
     Active Substance: PALBOCICLIB
     Dosage: 100 MG CYCLIC  (21 DAYS ON, 7 DAYS OFF)
     Route: 048
     Dates: start: 201610

REACTIONS (1)
  - Full blood count abnormal [Unknown]
